FAERS Safety Report 16689026 (Version 1)
Quarter: 2019Q3

REPORT INFORMATION
  Report Type: Spontaneous
  Country: US (occurrence: US)
  Receive Date: 20190809
  Receipt Date: 20190809
  Transmission Date: 20191004
  Serious: No
  Sender: FDA-Public Use
  Company Number: US-TEVA-2019-US-1088595

PATIENT
  Sex: Female

DRUGS (1)
  1. TEVA VENLAFAXINE TABLETS [Suspect]
     Active Substance: VENLAFAXINE HYDROCHLORIDE
     Indication: PAIN
     Route: 065

REACTIONS (3)
  - Dizziness [Unknown]
  - Visual impairment [Unknown]
  - Hyperhidrosis [Unknown]
